FAERS Safety Report 7796970-4 (Version None)
Quarter: 2011Q4

REPORT INFORMATION
  Report Type: 
  Country: None (occurrence: None)
  Receive Date: 20111005
  Receipt Date: 20111005
  Transmission Date: 20120403
  Serious: No
  Sender: FDA-Public Use
  Company Number: None

PATIENT
  Age: 31 Year
  Sex: Male
  Weight: 76.203 kg

DRUGS (1)
  1. SEROQUEL [Suspect]
     Dosage: 25 MG

REACTIONS (3)
  - NIGHT SWEATS [None]
  - ANORGASMIA [None]
  - MICTURITION DISORDER [None]
